FAERS Safety Report 7359182-4 (Version None)
Quarter: 2011Q1

REPORT INFORMATION
  Report Type: 
  Country: None (occurrence: None)
  Receive Date: 20110310
  Receipt Date: 20110223
  Transmission Date: 20110831
  Serious: Yes (Disabling, Other)
  Sender: FDA-Public Use
  Company Number: ACO_21912_2011

PATIENT
  Age: 74 Year
  Sex: Male

DRUGS (1)
  1. AMPYRA [Suspect]
     Indication: PRODUCT USED FOR UNKNOWN INDICATION
     Dosage: (10 MG, Q 12 HRS, ORAL) (10 MG, Q 12 HRS)
     Route: 048
     Dates: start: 20100616

REACTIONS (2)
  - PARALYSIS [None]
  - ADVERSE DRUG REACTION [None]
